FAERS Safety Report 5937095-X (Version None)
Quarter: 2008Q4

REPORT INFORMATION
  Report Type: 
  Country: None (occurrence: None)
  Receive Date: 20081031
  Receipt Date: 20081022
  Transmission Date: 20090506
  Serious: Yes (Hospitalization)
  Sender: FDA-Public Use
  Company Number: PHHY2008JP23998

PATIENT
  Sex: Female

DRUGS (7)
  1. VOLTAREN [Suspect]
     Indication: HERPES ZOSTER
     Dosage: 75 MG/DAY
     Route: 048
     Dates: start: 20080919, end: 20081002
  2. VOLTAREN [Suspect]
     Dosage: UNK
  3. VALTREX [Suspect]
     Indication: HERPES ZOSTER
     Dosage: 3000 MG/DAY
     Route: 048
     Dates: start: 20080919, end: 20080929
  4. MEROPENEM TRIHYDRATE [Suspect]
  5. CRAVIT [Suspect]
  6. CYANOCOBALAMIN [Concomitant]
     Dosage: 0.15 MG UNK
     Route: 048
     Dates: start: 20080919
  7. SELBEX [Concomitant]
     Dosage: 150 MG UNK
     Route: 048
     Dates: start: 20080919

REACTIONS (4)
  - AGRANULOCYTOSIS [None]
  - C-REACTIVE PROTEIN INCREASED [None]
  - NEUTROPENIA [None]
  - PYREXIA [None]
